FAERS Safety Report 22150207 (Version 1)
Quarter: 2023Q1

REPORT INFORMATION
  Report Type: Spontaneous
  Country: US (occurrence: None)
  Receive Date: 20230329
  Receipt Date: 20230329
  Transmission Date: 20230418
  Serious: Yes (Death, Other)
  Sender: FDA-Public Use
  Company Number: 2023A071239

PATIENT
  Age: 78 Year
  Sex: Female

DRUGS (4)
  1. BYETTA [Suspect]
     Active Substance: EXENATIDE
     Dosage: UNKNOWN
     Route: 058
  2. VICTOZA [Suspect]
     Active Substance: LIRAGLUTIDE
     Dosage: UNKNOWN
  3. DOXYCYCLINE [Suspect]
     Active Substance: DOXYCYCLINE
     Dosage: UNKNOWN
  4. TALIGLUCERASE ALFA [Suspect]
     Active Substance: TALIGLUCERASE ALFA
     Indication: Gaucher^s disease
     Dosage: UNKNOWN

REACTIONS (4)
  - Death [Fatal]
  - Rash [Fatal]
  - Abdominal discomfort [Fatal]
  - Hypersensitivity [Fatal]

NARRATIVE: CASE EVENT DATE: 20230221
